FAERS Safety Report 23978209 (Version 1)
Quarter: 2024Q2

REPORT INFORMATION
  Report Type: Spontaneous
  Country: JP (occurrence: JP)
  Receive Date: 20240614
  Receipt Date: 20240614
  Transmission Date: 20240716
  Serious: Yes (Other)
  Sender: FDA-Public Use
  Company Number: JP-ONO-2024JP012335

PATIENT
  Sex: Female

DRUGS (1)
  1. SITAGLIPTIN [Suspect]
     Active Substance: SITAGLIPTIN
     Indication: Type 2 diabetes mellitus
     Dosage: 50 MG
     Route: 048

REACTIONS (2)
  - Gastric cancer [Unknown]
  - Physical deconditioning [Unknown]

NARRATIVE: CASE EVENT DATE: 20211201
